FAERS Safety Report 25608958 (Version 3)
Quarter: 2025Q3

REPORT INFORMATION
  Report Type: Spontaneous
  Country: GB (occurrence: GB)
  Receive Date: 20250726
  Receipt Date: 20250912
  Transmission Date: 20251021
  Serious: Yes (Other)
  Sender: IPSEN BIOPHARMACEUTICALS, INC.
  Company Number: GB-ADVANZ PHARMA-202406004854

PATIENT
  Age: 87 Year
  Sex: Female

DRUGS (4)
  1. LANREOTIDE [Suspect]
     Active Substance: LANREOTIDE
     Indication: Neuroendocrine tumour
  2. LANREOTIDE [Suspect]
     Active Substance: LANREOTIDE
  3. LANREOTIDE [Suspect]
     Active Substance: LANREOTIDE
     Dosage: 90 MG (EVERY 28 DAYS)
     Dates: start: 202411
  4. LANREOTIDE [Suspect]
     Active Substance: LANREOTIDE
     Indication: Neuroendocrine tumour
     Route: 058

REACTIONS (12)
  - Sepsis [Unknown]
  - Hypotension [Recovered/Resolved]
  - Respiratory rate decreased [Unknown]
  - Tachycardia [Unknown]
  - Peripheral coldness [Unknown]
  - Dysgeusia [Unknown]
  - Malaise [Unknown]
  - Hypertension [Unknown]
  - Decreased appetite [Unknown]
  - Product dose omission issue [Unknown]
  - Treatment delayed [Unknown]
  - Inappropriate schedule of product administration [Unknown]
